FAERS Safety Report 6612106-7 (Version None)
Quarter: 2010Q1

REPORT INFORMATION
  Report Type: 
  Country: None (occurrence: None)
  Receive Date: 20100302
  Receipt Date: 20100302
  Transmission Date: 20100710
  Serious: No
  Sender: FDA-Public Use
  Company Number: None

PATIENT
  Age: 58 Year
  Sex: Female
  Weight: 66.6788 kg

DRUGS (1)
  1. TRILIPIX [Suspect]
     Indication: BLOOD TRIGLYCERIDES INCREASED
     Dosage: 135MG 1 DAILY PO MONTH
     Route: 048
     Dates: start: 20091010, end: 20091110

REACTIONS (6)
  - BURNING SENSATION [None]
  - GAIT DISTURBANCE [None]
  - HYPERAESTHESIA [None]
  - HYPOAESTHESIA [None]
  - TENDERNESS [None]
  - UNEVALUABLE EVENT [None]
